FAERS Safety Report 4877596-9 (Version None)
Quarter: 2006Q1

REPORT INFORMATION
  Report Type: 
  Country: None (occurrence: None)
  Receive Date: 20060109
  Receipt Date: 20051228
  Transmission Date: 20060701
  Serious: Yes (Hospitalization, Other)
  Sender: FDA-Public Use
  Company Number: 2005173520

PATIENT
  Age: 76 Year
  Sex: Female
  Weight: 56.246 kg

DRUGS (9)
  1. LIPITOR [Suspect]
     Indication: BLOOD CHOLESTEROL INCREASED
     Dosage: (DAILY),  (THERAPY DATES: 4 TO 5 YEARS AGO - STOPPED)
  2. CORTICOSTEROIDS (CORTICOSTEROIDS) [Suspect]
     Indication: POLYMYALGIA RHEUMATICA
  3. LOVASTATIN [Suspect]
     Indication: BLOOD CHOLESTEROL INCREASED
     Dates: start: 20050101
  4. PLAVIX [Concomitant]
  5. OXYBUTYNIN CHLORIDE [Concomitant]
  6. SYNTHROID [Concomitant]
  7. ANALGESICS (ANALGESICS) [Concomitant]
  8. VITAMINS (VITAMINS) [Concomitant]
  9. ALL OTHER NON-THERAPEUTIC PRODUCTS (ALL OTHER NON-THERAPEUTIC PRODUCTS [Concomitant]

REACTIONS (8)
  - ARTERIAL OCCLUSIVE DISEASE [None]
  - BLOOD CHOLESTEROL INCREASED [None]
  - CEREBROVASCULAR ACCIDENT [None]
  - DRUG EFFECT DECREASED [None]
  - PHARMACEUTICAL PRODUCT COMPLAINT [None]
  - THROAT TIGHTNESS [None]
  - WEIGHT DECREASED [None]
  - WEIGHT INCREASED [None]
